FAERS Safety Report 8912803 (Version 1)
Quarter: 2012Q4

REPORT INFORMATION
  Report Type: 
  Country: SE (occurrence: SE)
  Receive Date: 20121116
  Receipt Date: 20121116
  Transmission Date: 20130627
  Serious: Yes (Hospitalization)
  Sender: FDA-Public Use
  Company Number: SE-PFIZER INC-2012283276

PATIENT
  Age: 29 Year
  Sex: Female
  Weight: 67 kg

DRUGS (5)
  1. GENOTROPIN [Suspect]
     Dosage: 1.0 mg, 1x/day,7 injections/week
     Route: 058
     Dates: start: 20030805
  2. TRISEKVENS [Concomitant]
     Indication: LUTEINIZING HORMONE DEFICIENCY
     Dosage: UNK
     Dates: start: 19970915
  3. TRISEKVENS [Concomitant]
     Indication: FOLLICLE-STIMULATING HORMONE DEFICIENCY
  4. TRISEKVENS [Concomitant]
     Indication: OVARIAN DISORDER
  5. TRISEKVENS [Concomitant]
     Indication: HYPOGONADISM

REACTIONS (1)
  - Jaw disorder [Unknown]
